FAERS Safety Report 4590358-5 (Version None)
Quarter: 2005Q1

REPORT INFORMATION
  Report Type: 
  Country: None (occurrence: None)
  Receive Date: 20050217
  Receipt Date: 20050204
  Transmission Date: 20050727
  Serious: No
  Sender: FDA-Public Use
  Company Number: 2005AP01005

PATIENT
  Age: 30 Year
  Sex: Female
  Weight: 91 kg

DRUGS (5)
  1. PROPOFOL [Suspect]
     Dosage: 1 G DAILY IV
     Route: 042
  2. FENTANYL CITRATE [Suspect]
     Dosage: 200 UG DAILY
  3. PARACOXIB SODIUM [Suspect]
     Dosage: 40 MG DAILY
  4. TRAMADOL HCL [Suspect]
     Dosage: 400 MG DAILY
  5. DOLASETRON MESILATE [Suspect]
     Dosage: 12.5 MG DAILY

REACTIONS (3)
  - CONVULSION [None]
  - MENTAL STATUS CHANGES POSTOPERATIVE [None]
  - POST PROCEDURAL COMPLICATION [None]
